FAERS Safety Report 13578715 (Version 7)
Quarter: 2017Q3

REPORT INFORMATION
  Report Type: Report from Study
  Country: US (occurrence: US)
  Receive Date: 20170524
  Receipt Date: 20170721
  Transmission Date: 20171127
  Serious: Yes (Other)
  Sender: FDA-Public Use
  Company Number: US-TEVA-772013USA

PATIENT
  Age: 54 Year
  Sex: Female

DRUGS (14)
  1. COLACE [Concomitant]
     Active Substance: DOCUSATE SODIUM
  2. ADVIL [Concomitant]
     Active Substance: IBUPROFEN
  3. LISINOPRIL. [Concomitant]
     Active Substance: LISINOPRIL
  4. ATORVASTATIN [Concomitant]
     Active Substance: ATORVASTATIN
  5. VITAMIN D [Concomitant]
     Active Substance: CHOLECALCIFEROL
  6. AUSTEDO [Suspect]
     Active Substance: DEUTETRABENAZINE
     Indication: HUNTINGTON^S DISEASE
     Dosage: 48 MILLIGRAM DAILY;
     Route: 065
     Dates: start: 2017, end: 20170604
  7. ALEVE [Concomitant]
     Active Substance: NAPROXEN SODIUM
  8. GABAPENTIN. [Concomitant]
     Active Substance: GABAPENTIN
  9. TYLENOL [Concomitant]
     Active Substance: ACETAMINOPHEN
  10. AUSTEDO [Suspect]
     Active Substance: DEUTETRABENAZINE
     Dosage: 24 MILLIGRAM DAILY;
     Route: 065
     Dates: start: 20170503
  11. ZOLOFT [Concomitant]
     Active Substance: SERTRALINE HYDROCHLORIDE
  12. DIAZEPAM. [Concomitant]
     Active Substance: DIAZEPAM
  13. BACLOFEN. [Concomitant]
     Active Substance: BACLOFEN
  14. RANITIDINE. [Concomitant]
     Active Substance: RANITIDINE

REACTIONS (8)
  - Mental disorder [Unknown]
  - Depression [Not Recovered/Not Resolved]
  - Suicidal ideation [Recovering/Resolving]
  - Memory impairment [Not Recovered/Not Resolved]
  - Fall [Recovering/Resolving]
  - Pain [Recovering/Resolving]
  - Incorrect dose administered [Unknown]
  - Drug ineffective [Unknown]

NARRATIVE: CASE EVENT DATE: 2017
